FAERS Safety Report 13663654 (Version 10)
Quarter: 2018Q2

REPORT INFORMATION
  Report Type: Spontaneous
  Country: US (occurrence: US)
  Receive Date: 20170619
  Receipt Date: 20180503
  Transmission Date: 20180711
  Serious: Yes (Congenital Anomaly, Other)
  Sender: FDA-Public Use
  Company Number: PHEH2017US018504

PATIENT
  Sex: Female

DRUGS (2)
  1. ZOFRAN [Suspect]
     Active Substance: ONDANSETRON HYDROCHLORIDE
     Indication: FOETAL EXPOSURE DURING PREGNANCY
     Route: 064
  2. ZOFRAN [Suspect]
     Active Substance: ONDANSETRON HYDROCHLORIDE
     Indication: FOETAL EXPOSURE DURING PREGNANCY
     Route: 064

REACTIONS (86)
  - Cardiomegaly [Unknown]
  - Premature baby [Unknown]
  - Ureteritis [Unknown]
  - Foetal exposure during pregnancy [Unknown]
  - Constipation [Unknown]
  - Nausea [Unknown]
  - Vomiting [Unknown]
  - Eye pruritus [Unknown]
  - Sleep disorder [Unknown]
  - Pulmonary valve incompetence [Unknown]
  - Right ventricular enlargement [Unknown]
  - Abdominal pain lower [Unknown]
  - Cystitis [Unknown]
  - Vision blurred [Unknown]
  - Dizziness [Unknown]
  - Pulmonary artery stenosis [Unknown]
  - Mitral valve incompetence [Unknown]
  - Pneumothorax [Unknown]
  - Acute respiratory failure [Unknown]
  - Abdominal distension [Unknown]
  - Contusion [Unknown]
  - Depression [Unknown]
  - Tachycardia [Unknown]
  - Bronchitis [Unknown]
  - Lymphadenopathy [Unknown]
  - Heart disease congenital [Unknown]
  - Ventricular septal defect [Unknown]
  - Cardiac aneurysm [Unknown]
  - Cytogenetic abnormality [Unknown]
  - XXX syndrome [Unknown]
  - Atelectasis [Unknown]
  - Suicidal ideation [Unknown]
  - Developmental delay [Unknown]
  - Injury [Unknown]
  - Pyrexia [Unknown]
  - Vaginal infection [Unknown]
  - Headache [Unknown]
  - Obsessive-compulsive disorder [Unknown]
  - Onychophagia [Unknown]
  - Fallot^s tetralogy [Unknown]
  - Right ventricular hypertrophy [Unknown]
  - Pleural effusion [Unknown]
  - Seizure [Unknown]
  - Pyelonephritis [Unknown]
  - Intellectual disability [Unknown]
  - Procedural pneumothorax [Unknown]
  - Cardiogenic shock [Unknown]
  - Peripheral venous disease [Unknown]
  - Phobia [Unknown]
  - Upper respiratory tract infection [Unknown]
  - Cough [Unknown]
  - Pain in extremity [Unknown]
  - Ocular hyperaemia [Unknown]
  - Cerebral cyst [Unknown]
  - Right ventricular hypertension [Unknown]
  - Dysuria [Unknown]
  - Back pain [Unknown]
  - Menstruation irregular [Unknown]
  - Asymptomatic bacteriuria [Unknown]
  - Cardiac murmur [Unknown]
  - Abdominal pain upper [Unknown]
  - Learning disability [Unknown]
  - Pruritus genital [Unknown]
  - Tricuspid valve incompetence [Unknown]
  - Urinary tract infection [Unknown]
  - Dyspnoea [Recovered/Resolved]
  - Clubbing [Unknown]
  - Bladder disorder [Unknown]
  - Muscle strain [Unknown]
  - Pharyngitis [Unknown]
  - Eye pain [Unknown]
  - Chills [Unknown]
  - Dehydration [Unknown]
  - Atrial septal defect [Unknown]
  - Cellulitis [Unknown]
  - Cyanosis [Unknown]
  - Enuresis [Unknown]
  - Flank pain [Unknown]
  - Chalazion [Unknown]
  - Otitis media [Unknown]
  - Oropharyngeal pain [Unknown]
  - Nasal congestion [Unknown]
  - Rhinorrhoea [Unknown]
  - Ecchymosis [Unknown]
  - Insomnia [Unknown]
  - Anxiety [Unknown]
